FAERS Safety Report 8430552-6 (Version None)
Quarter: 2012Q2

REPORT INFORMATION
  Report Type: 
  Country: None (occurrence: None)
  Receive Date: 20120606
  Receipt Date: 20120606
  Transmission Date: 20120825
  Serious: Yes (Hospitalization)
  Sender: FDA-Public Use
  Company Number: None

PATIENT
  Age: 45 Year
  Sex: Male
  Weight: 138.6 kg

DRUGS (1)
  1. INFLIXIMAB [Suspect]
     Indication: ARTHROPATHY
     Dosage: 650 MG
     Dates: start: 20120412, end: 20120412

REACTIONS (4)
  - MYALGIA [None]
  - PAIN [None]
  - PYREXIA [None]
  - SERUM SICKNESS [None]
